FAERS Safety Report 7222234-3 (Version None)
Quarter: 2011Q1

REPORT INFORMATION
  Report Type: 
  Country: None (occurrence: None)
  Receive Date: 20110103
  Receipt Date: 20101222
  Transmission Date: 20110831
  Serious: Yes (Other)
  Sender: FDA-Public Use
  Company Number: 2010SP065951

PATIENT
  Age: 66 Year
  Sex: Female

DRUGS (2)
  1. DECADRON [Concomitant]
  2. TEMODAL [Suspect]
     Indication: GLIOBLASTOMA MULTIFORME

REACTIONS (4)
  - CYTOMEGALOVIRUS TEST POSITIVE [None]
  - PNEUMONIA [None]
  - HEPATIC FUNCTION ABNORMAL [None]
  - ALTERED STATE OF CONSCIOUSNESS [None]
